FAERS Safety Report 16358250 (Version 3)
Quarter: 2019Q3

REPORT INFORMATION
  Report Type: Spontaneous
  Country: US (occurrence: US)
  Receive Date: 20190527
  Receipt Date: 20190906
  Transmission Date: 20191004
  Serious: Yes (Death, Other)
  Sender: FDA-Public Use
  Company Number: US-ASTRAZENECA-2019SE76664

PATIENT
  Age: 25024 Day
  Sex: Male

DRUGS (16)
  1. JANUVIA [Concomitant]
     Active Substance: SITAGLIPTIN PHOSPHATE
  2. AMOXICILLIN. [Concomitant]
     Active Substance: AMOXICILLIN
  3. CARVEDILOL. [Concomitant]
     Active Substance: CARVEDILOL
  4. FUROSEMIDE. [Concomitant]
     Active Substance: FUROSEMIDE
  5. SPIRONOLACTONE. [Concomitant]
     Active Substance: SPIRONOLACTONE
  6. CARVEDILOL. [Concomitant]
     Active Substance: CARVEDILOL
  7. GLIPIZIDE. [Concomitant]
     Active Substance: GLIPIZIDE
  8. PLAVIX [Concomitant]
     Active Substance: CLOPIDOGREL BISULFATE
  9. LIPITOR [Concomitant]
     Active Substance: ATORVASTATIN CALCIUM
  10. LISINOPRIL. [Concomitant]
     Active Substance: LISINOPRIL
  11. ATORVASTATIN [Concomitant]
     Active Substance: ATORVASTATIN
  12. METFORMIN [Concomitant]
     Active Substance: METFORMIN HYDROCHLORIDE
  13. ASPIRIN. [Concomitant]
     Active Substance: ASPIRIN
  14. ONGLYZA [Suspect]
     Active Substance: SAXAGLIPTIN HYDROCHLORIDE
     Indication: TYPE 2 DIABETES MELLITUS
     Route: 048
     Dates: start: 20111011
  15. METOPROLOL. [Concomitant]
     Active Substance: METOPROLOL
  16. LASIX [Concomitant]
     Active Substance: FUROSEMIDE

REACTIONS (7)
  - Coronary artery disease [Unknown]
  - Left ventricular failure [Unknown]
  - Arteriosclerosis coronary artery [Unknown]
  - Cardiac failure [Unknown]
  - Ventricular fibrillation [Fatal]
  - Arrhythmia [Unknown]
  - Cardiac failure congestive [Unknown]

NARRATIVE: CASE EVENT DATE: 20170609
